FAERS Safety Report 22283581 (Version 2)
Quarter: 2023Q2

REPORT INFORMATION
  Report Type: Spontaneous
  Country: US (occurrence: US)
  Receive Date: 20230504
  Receipt Date: 20230621
  Transmission Date: 20230722
  Serious: No
  Sender: FDA-Public Use
  Company Number: US-PFIZER INC-PV202300078226

PATIENT
  Age: 4 Year
  Sex: Male

DRUGS (1)
  1. GENOTROPIN [Suspect]
     Active Substance: SOMATROPIN
     Dosage: 0.4 MG, 1X/DAY (7 DAYS/WK)
     Dates: start: 202302

REACTIONS (4)
  - Device breakage [Unknown]
  - Device use issue [Unknown]
  - Product communication issue [Unknown]
  - Drug dose omission by device [Unknown]
